FAERS Safety Report 10689600 (Version 2)
Quarter: 2015Q1

REPORT INFORMATION
  Report Type: Spontaneous
  Country: US (occurrence: US)
  Receive Date: 20150105
  Receipt Date: 20150116
  Transmission Date: 20150720
  Serious: No
  Sender: FDA-Public Use
  Company Number: US-PFIZER INC-2014360682

PATIENT
  Age: 35 Year
  Sex: Female
  Weight: 72 kg

DRUGS (1)
  1. NARDIL [Suspect]
     Active Substance: PHENELZINE SULFATE
     Indication: BIPOLAR DISORDER
     Dosage: UNK
     Dates: start: 1984, end: 1988

REACTIONS (1)
  - Blood pressure increased [Unknown]
